FAERS Safety Report 16939249 (Version 3)
Quarter: 2019Q4

REPORT INFORMATION
  Report Type: Report from Study
  Country: BE (occurrence: BE)
  Receive Date: 20191021
  Receipt Date: 20191118
  Transmission Date: 20200122
  Serious: Yes (Other)
  Sender: FDA-Public Use
  Company Number: BE-BEH-2019106254

PATIENT
  Sex: Female

DRUGS (1)
  1. HIZENTRA [Suspect]
     Active Substance: HUMAN IMMUNOGLOBULIN G
     Dosage: 6 GRAM / 30 ML, QW
     Route: 058
     Dates: start: 20190808, end: 201910

REACTIONS (9)
  - Musculoskeletal disorder [Unknown]
  - Nausea [Unknown]
  - Diarrhoea [Unknown]
  - Hypotension [Unknown]
  - No adverse event [Unknown]
  - Therapy cessation [Unknown]
  - Malaise [Unknown]
  - Facial paralysis [Recovering/Resolving]
  - Hypoaesthesia [Recovering/Resolving]

NARRATIVE: CASE EVENT DATE: 20190816
